FAERS Safety Report 25880724 (Version 1)
Quarter: 2025Q4

REPORT INFORMATION
  Report Type: Spontaneous
  Country: CA (occurrence: CA)
  Receive Date: 20251004
  Receipt Date: 20251004
  Transmission Date: 20260117
  Serious: Yes (Other)
  Sender: MICRO LABS LIMITED
  Company Number: CA-MICRO LABS LIMITED-ML2025-05005

PATIENT

DRUGS (1)
  1. RANOLAZINE [Suspect]
     Active Substance: RANOLAZINE
     Indication: Product used for unknown indication

REACTIONS (1)
  - Angina pectoris [Unknown]
